FAERS Safety Report 24314055 (Version 1)
Quarter: 2024Q3

REPORT INFORMATION
  Report Type: Other
  Country: US (occurrence: US)
  Receive Date: 20240912
  Receipt Date: 20240912
  Transmission Date: 20241017
  Serious: No
  Sender: SIGMA TAU
  Company Number: US-LEADIANT BIOSCIENCES, INC.-2024LBI000273

PATIENT
  Sex: Female

DRUGS (1)
  1. MATULANE [Suspect]
     Active Substance: PROCARBAZINE HYDROCHLORIDE
     Indication: Brain neoplasm malignant
     Dosage: 150 MILLIGRAMS ONCE DAILY FOR 14 DAYS
     Route: 048
     Dates: start: 20240414

REACTIONS (2)
  - Platelet count decreased [Unknown]
  - Immune system disorder [Unknown]
